FAERS Safety Report 5868061-0 (Version None)
Quarter: 2008Q3

REPORT INFORMATION
  Report Type: 
  Country: None (occurrence: None)
  Receive Date: 20080902
  Receipt Date: 20080828
  Transmission Date: 20090109
  Serious: Yes (Death)
  Sender: FDA-Public Use
  Company Number: US-GENENTECH-267083

PATIENT
  Sex: Female
  Weight: 91 kg

DRUGS (1)
  1. RANIBIZUMAB [Suspect]
     Indication: MACULAR OEDEMA
     Dosage: 0.5 MG, 1/MONTH
     Route: 031
     Dates: start: 20080625

REACTIONS (1)
  - DEATH [None]
